FAERS Safety Report 17735862 (Version 1)
Quarter: 2020Q2

REPORT INFORMATION
  Report Type: Spontaneous
  Country: GB (occurrence: GB)
  Receive Date: 20200501
  Receipt Date: 20200501
  Transmission Date: 20200714
  Serious: Yes (Life-Threatening)
  Sender: FDA-Public Use
  Company Number: GB-JNJFOC-20200438813

PATIENT
  Age: 69 Year
  Sex: Male
  Weight: 96 kg

DRUGS (5)
  1. LEVOTHYROXINE. [Concomitant]
     Active Substance: LEVOTHYROXINE
  2. RIVAROXABAN [Suspect]
     Active Substance: RIVAROXABAN
     Dosage: 20 MG, QD
     Route: 048
     Dates: start: 2020, end: 20200331
  3. ALLOPURINOL. [Concomitant]
     Active Substance: ALLOPURINOL
  4. RIVAROXABAN [Suspect]
     Active Substance: RIVAROXABAN
     Dosage: 15 MG, BID
     Route: 048
     Dates: start: 20200115
  5. RIVAROXABAN [Suspect]
     Active Substance: RIVAROXABAN
     Indication: THROMBOSIS
     Dosage: INITIALLY 15MG TWICE A DAY THEN 20MG A DAY.
     Route: 048
     Dates: start: 20200115, end: 20200331

REACTIONS (8)
  - Dizziness [Unknown]
  - Accidental overdose [Unknown]
  - Dyspnoea [Unknown]
  - Skin discolouration [Unknown]
  - Mood altered [Unknown]
  - Migraine [Unknown]
  - Fall [Unknown]
  - Withdrawal syndrome [Unknown]

NARRATIVE: CASE EVENT DATE: 20200402
